FAERS Safety Report 6215606-7 (Version None)
Quarter: 2009Q2

REPORT INFORMATION
  Report Type: 
  Country: None (occurrence: None)
  Receive Date: 20090603
  Receipt Date: 20090603
  Transmission Date: 20091009
  Serious: Yes (Life-Threatening, Hospitalization)
  Sender: FDA-Public Use
  Company Number: None

PATIENT
  Age: 62 Year
  Sex: Female

DRUGS (1)
  1. PREGABALIN [Suspect]
     Dosage: 200 MG TID PO
     Route: 048

REACTIONS (2)
  - ACUTE RESPIRATORY FAILURE [None]
  - ANGIOEDEMA [None]
